FAERS Safety Report 8550688-9 (Version None)
Quarter: 2012Q3

REPORT INFORMATION
  Report Type: 
  Country: None (occurrence: None)
  Receive Date: 20120730
  Receipt Date: 20120726
  Transmission Date: 20120928
  Serious: Yes (Hospitalization, Other)
  Sender: FDA-Public Use
  Company Number: US-GLAXOSMITHKLINE-A0979499A

PATIENT
  Age: 61 Year
  Sex: Female

DRUGS (9)
  1. ZOCOR [Concomitant]
  2. ADVAIR DISKUS 100/50 [Suspect]
     Indication: PRODUCT USED FOR UNKNOWN INDICATION
     Dosage: 1PUFF TWICE PER DAY
     Route: 055
     Dates: start: 20100101
  3. SYNTHROID [Concomitant]
  4. FUROSEMIDE [Concomitant]
  5. VALIUM [Concomitant]
  6. XANAX [Concomitant]
  7. POTASSIUM CHLORIDE [Concomitant]
  8. NASONEX [Concomitant]
  9. SINGULAIR [Concomitant]

REACTIONS (1)
  - DYSPNOEA [None]
